FAERS Safety Report 10564265 (Version 1)
Quarter: 2014Q4

REPORT INFORMATION
  Report Type: Spontaneous
  Country: US (occurrence: US)
  Receive Date: 20141104
  Receipt Date: 20141104
  Transmission Date: 20150529
  Serious: Yes (Other)
  Sender: FDA-Public Use
  Company Number: US-ACORDA-ACO_106697_2014

PATIENT

DRUGS (1)
  1. AMPYRA [Suspect]
     Active Substance: DALFAMPRIDINE
     Indication: PRODUCT USED FOR UNKNOWN INDICATION
     Dosage: 10 MG, BID
     Route: 065
     Dates: start: 20140624

REACTIONS (14)
  - Pain [Unknown]
  - Drug dose omission [Unknown]
  - Asthenia [Unknown]
  - Wisdom teeth removal [Unknown]
  - Suicidal ideation [Unknown]
  - Disease progression [Unknown]
  - Movement disorder [Unknown]
  - Fatigue [Unknown]
  - Lethargy [Unknown]
  - Inflammation [Unknown]
  - Dizziness [Unknown]
  - Haemorrhage [Unknown]
  - Incontinence [Unknown]
  - Tremor [Unknown]

NARRATIVE: CASE EVENT DATE: 201409
